FAERS Safety Report 12357498 (Version 7)
Quarter: 2016Q3

REPORT INFORMATION
  Report Type: Spontaneous
  Country: CN (occurrence: CN)
  Receive Date: 20160511
  Receipt Date: 20160713
  Transmission Date: 20161109
  Serious: Yes (Other)
  Sender: FDA-Public Use
  Company Number: CN-009507513-1605CHN005129

PATIENT
  Age: 43 Year
  Sex: Male
  Weight: 60 kg

DRUGS (15)
  1. EMEND [Suspect]
     Active Substance: APREPITANT
     Dosage: 80 MG, QD , DAY 2 AND DAY 3
     Route: 048
     Dates: start: 20141205, end: 20141206
  2. SODIUM BICARBONATE. [Concomitant]
     Active Substance: SODIUM BICARBONATE
     Indication: ELECTROLYTE IMBALANCE
     Dosage: 125 ML, QD
     Route: 041
     Dates: start: 20141204, end: 20141207
  3. ETOPOSIDE. [Concomitant]
     Active Substance: ETOPOSIDE
     Indication: CHEMOTHERAPY
     Dosage: 0.19G, TREATMENT REGIMEN EP, TREATMENT CYCLE 1.
     Route: 041
     Dates: start: 20141204, end: 20141207
  4. SHEN MAI ZHU SHE YE [Concomitant]
     Indication: IMMUNE ENHANCEMENT THERAPY
     Dosage: 20 ML, QD
     Route: 041
     Dates: start: 20141204, end: 20141209
  5. POTASSIUM CHLORIDE. [Concomitant]
     Active Substance: POTASSIUM CHLORIDE
     Indication: ELECTROLYTE IMBALANCE
     Dosage: 1 G, QD
     Route: 041
     Dates: start: 20141204, end: 20141207
  6. LANSOPRAZOLE. [Concomitant]
     Active Substance: LANSOPRAZOLE
     Indication: DYSPEPSIA
     Dosage: 30 MG, QD
     Route: 041
     Dates: start: 20141204, end: 20141209
  7. PHOSPHOCREATINE SODIUM [Concomitant]
     Indication: CARDIOVASCULAR EVENT PROPHYLAXIS
     Dosage: 1 G, QD
     Route: 041
     Dates: start: 20141204, end: 20141209
  8. UBENIMEX [Concomitant]
     Active Substance: UBENIMEX
     Indication: IMMUNE ENHANCEMENT THERAPY
     Dosage: 10 MG, ONCE
     Route: 048
     Dates: start: 20141208, end: 20141208
  9. GRANULOCYTE COLONY STIMULATING FACTOR (UNSPECIFIED) [Concomitant]
     Active Substance: FILGRASTIM
     Indication: WHITE BLOOD CELL COUNT INCREASED
     Dosage: 200 MICROGRAM, ONCE
     Route: 058
     Dates: start: 20141208, end: 20141208
  10. DEXAMETHASONE SODIUM PHOSPHATE. [Concomitant]
     Active Substance: DEXAMETHASONE SODIUM PHOSPHATE
     Indication: PROPHYLAXIS OF NAUSEA AND VOMITING
     Dosage: 5 MG, QD
     Route: 042
     Dates: start: 20141204, end: 20141207
  11. ZHEN QI FU ZHENG [Concomitant]
     Indication: IMMUNE ENHANCEMENT THERAPY
     Dosage: STRENGTH 1 BAG, 1 BAG, BID, FORMULATION PULVIS
     Route: 048
     Dates: start: 20141208, end: 20141208
  12. XI YAN PING ZHU SHE YE [Concomitant]
     Indication: THERAPEUTIC PROCEDURE
     Dosage: 250 MG, QD
     Route: 041
     Dates: start: 20141204, end: 20141207
  13. EMEND [Suspect]
     Active Substance: APREPITANT
     Indication: PROPHYLAXIS OF NAUSEA AND VOMITING
     Dosage: 125 MG, ONCE, DAY 1
     Route: 048
     Dates: start: 20141204, end: 20141204
  14. DIISOPROPYLAMINE DICHLOROACETATE [Concomitant]
     Indication: PROPHYLAXIS
     Dosage: 80 MG, QD
     Route: 041
     Dates: start: 20141204, end: 20141209
  15. SHEN KANG ZHU SHE YE [Concomitant]
     Indication: PROPHYLAXIS
     Dosage: 100 ML, QD
     Route: 041
     Dates: start: 20141204, end: 20141209

REACTIONS (2)
  - Upper respiratory tract infection [Recovered/Resolved]
  - Diabetes mellitus [Recovered/Resolved]

NARRATIVE: CASE EVENT DATE: 20141219
